FAERS Safety Report 4605468-3 (Version None)
Quarter: 2005Q1

REPORT INFORMATION
  Report Type: 
  Country: None (occurrence: None)
  Receive Date: 20050310
  Receipt Date: 20040805
  Transmission Date: 20050727
  Serious: No
  Sender: FDA-Public Use
  Company Number: US-BRISTOL-MYERS SQUIBB COMPANY-12666079

PATIENT
  Age: 23 Year
  Sex: Female
  Weight: 66 kg

DRUGS (2)
  1. VAGISTAT-1 [Suspect]
     Indication: GENITAL PRURITUS FEMALE
     Route: 067
     Dates: start: 20040805, end: 20040805
  2. VAGISTAT-1 [Suspect]
     Indication: ABDOMINAL PAIN LOWER
     Route: 067
     Dates: start: 20040805, end: 20040805

REACTIONS (1)
  - VAGINAL BURNING SENSATION [None]
